FAERS Safety Report 7793647-6 (Version None)
Quarter: 2011Q4

REPORT INFORMATION
  Report Type: 
  Country: None (occurrence: None)
  Receive Date: 20111003
  Receipt Date: 20110928
  Transmission Date: 20120403
  Serious: Yes (Death, Hospitalization)
  Sender: FDA-Public Use
  Company Number: FR-PFIZER INC-2011020253

PATIENT
  Age: 91 Year
  Sex: Female

DRUGS (7)
  1. ATORVASTATIN CALCIUM [Suspect]
     Dosage: 40 MG, 1X/DAY
     Route: 048
     Dates: start: 20101216, end: 20110118
  2. VALSARTAN [Concomitant]
     Dosage: 160 MG, 1X/DAY
     Route: 048
     Dates: start: 20101212
  3. CITALOPRAM [Concomitant]
     Dosage: 20 MG, 1X/DAY
     Route: 048
  4. ASPIRIN [Concomitant]
     Dosage: 160 MG, 1X/DAY
     Route: 048
     Dates: start: 20101217
  5. AMLODIPINE/VALSARTAN [Concomitant]
     Dosage: 5 MG, 1X/DAY
     Route: 048
     Dates: end: 20101212
  6. MIANSERIN HYDROCHLORIDE [Concomitant]
     Dosage: 10 MG, 1X/DAY
     Route: 048
  7. AMLODIPINE [Concomitant]
     Dosage: 5 MG, 1X/DAY
     Dates: start: 20101212

REACTIONS (6)
  - PEMPHIGOID [None]
  - DERMATITIS BULLOUS [None]
  - RESPIRATORY DISTRESS [None]
  - ECZEMA [None]
  - PNEUMONIA ASPIRATION [None]
  - RESPIRATORY DISORDER [None]
